FAERS Safety Report 16346444 (Version 2)
Quarter: 2020Q2

REPORT INFORMATION
  Report Type: Report from Study
  Country: CA (occurrence: CA)
  Receive Date: 20190523
  Receipt Date: 20200413
  Transmission Date: 20200713
  Serious: Yes (Other)
  Sender: FDA-Public Use
  Company Number: CA-TOLMAR, INC.-2019CA005139

PATIENT
  Sex: Male

DRUGS (12)
  1. INCRUSE ELLIPTA [Concomitant]
     Active Substance: UMECLIDINIUM BROMIDE
     Dosage: 62.5 MG, 1 INHALATION ONCE DAILY
     Route: 055
     Dates: start: 20190425
  2. ELIGARD [Suspect]
     Active Substance: LEUPROLIDE ACETATE
     Indication: PROSTATE CANCER
     Dosage: 22.5 MILLIGRAM, Q 3 MONTH
     Route: 058
     Dates: start: 20181126
  3. ELIGARD [Suspect]
     Active Substance: LEUPROLIDE ACETATE
     Dosage: 22.5 MILLIGRAM, Q 3 MONTH
     Route: 058
     Dates: start: 20190131
  4. ELIGARD [Suspect]
     Active Substance: LEUPROLIDE ACETATE
     Dosage: 22.5 MILLIGRAM, Q 3 MONTH
     Route: 058
     Dates: start: 20200124, end: 20200127
  5. ADVAIR HFA [Concomitant]
     Active Substance: FLUTICASONE PROPIONATE\SALMETEROL XINAFOATE
     Dosage: 50/100 MCG 1 INHALATION 2 TIMES PER DAY MORNING AND NIGHT AS NEEDED
     Dates: start: 20190425
  6. MONTELUKAST [Concomitant]
     Active Substance: MONTELUKAST SODIUM
     Dosage: 10 MG, 1 TAB ONCE DAILY AT BEDTIME REGULARLY
     Dates: start: 20190325
  7. SYMBICORT [Concomitant]
     Active Substance: BUDESONIDE\FORMOTEROL FUMARATE DIHYDRATE
  8. RIVA-AZITHROMYCIN [Concomitant]
     Dosage: 250 MG, 2 TABLETS THE FIRST DAY THEN 1 TAB ONCE DAILY BETWEEN 2ND AND 5TH DAY
     Dates: start: 20190123
  9. JAMP CALCIUM + VITAMIN D [Concomitant]
     Dosage: 500MG-1000UL, TAKE ONE CAPSULE ONCE DAILY
     Dates: start: 20181119
  10. SYNTHROID [Concomitant]
     Active Substance: LEVOTHYROXINE SODIUM
     Dosage: 0.137 MG, DAILY
     Dates: start: 20190425
  11. APOSALVENT [Concomitant]
     Active Substance: ALBUTEROL
     Dosage: 100 MCG, 2 INHALATIONS 4 TIMES DAILY IF NEEDED
  12. BRICANYL [Concomitant]
     Active Substance: TERBUTALINE SULFATE
     Dosage: UNK ?G, UNK

REACTIONS (1)
  - Prostatitis [Unknown]
